FAERS Safety Report 10996899 (Version 1)
Quarter: 2015Q2

REPORT INFORMATION
  Report Type: Spontaneous
  Country: US (occurrence: None)
  Receive Date: 20150402
  Receipt Date: 20150402
  Transmission Date: 20150821
  Serious: Yes (Other)
  Sender: FDA-Public Use
  Company Number: 201408140

PATIENT
  Age: 39 Year
  Sex: Female

DRUGS (4)
  1. IBUPROFEN (IBUPROFEN) [Concomitant]
     Active Substance: IBUPROFEN
  2. MIRENA (LEVONORGESTREL) [Concomitant]
  3. BENADRYL (DIPHENHYDRAMINE HYDROCHLORIDE0 [Concomitant]
  4. XIAFLEX [Suspect]
     Active Substance: COLLAGENASE CLOSTRIDIUM HISTOLYTICUM
     Indication: DUPUYTREN^S CONTRACTURE
     Dosage: INTRALESIONAL

REACTIONS (5)
  - Pruritus [None]
  - Tendon rupture [None]
  - Lymphadenopathy [None]
  - Blister [None]
  - Lymph node pain [None]

NARRATIVE: CASE EVENT DATE: 20140731
